FAERS Safety Report 10384443 (Version 1)
Quarter: 2014Q3

REPORT INFORMATION
  Report Type: Spontaneous
  Country: FR (occurrence: FR)
  Receive Date: 20140814
  Receipt Date: 20140814
  Transmission Date: 20150326
  Serious: Yes (Hospitalization)
  Sender: FDA-Public Use
  Company Number: FR-SA-2014SA108772

PATIENT
  Age: 66 Year
  Sex: Female
  Weight: 164 kg

DRUGS (11)
  1. ROCEPHINE [Suspect]
     Active Substance: CEFTRIAXONE SODIUM
     Indication: ANTIBIOTIC THERAPY
     Route: 058
     Dates: start: 20140528, end: 20140606
  2. LANTUS [Concomitant]
     Active Substance: INSULIN GLARGINE
  3. TRIATEC [Suspect]
     Active Substance: RAMIPRIL
     Indication: PRODUCT USED FOR UNKNOWN INDICATION
     Route: 065
  4. AUGMENTIN [Suspect]
     Active Substance: AMOXICILLIN\CLAVULANATE POTASSIUM
     Indication: SUPERINFECTION
     Route: 048
     Dates: start: 20140507, end: 20140522
  5. ATORVASTATIN [Concomitant]
     Active Substance: ATORVASTATIN
  6. AMLOR [Concomitant]
     Active Substance: AMLODIPINE BESYLATE
  7. CARDENSIEL [Concomitant]
     Active Substance: BISOPROLOL FUMARATE
  8. PANTOPRAZOLE [Concomitant]
     Active Substance: PANTOPRAZOLE SODIUM
  9. CALCIDOSE [Concomitant]
     Active Substance: CALCIUM CARBONATE
  10. HUMALOG [Concomitant]
     Active Substance: INSULIN LISPRO
  11. LASILIX [Suspect]
     Active Substance: FUROSEMIDE
     Indication: PRODUCT USED FOR UNKNOWN INDICATION
     Route: 065

REACTIONS (2)
  - Clostridium difficile colitis [Recovered/Resolved]
  - Renal failure acute [Not Recovered/Not Resolved]

NARRATIVE: CASE EVENT DATE: 20140616
